FAERS Safety Report 9803422 (Version 1)
Quarter: 2014Q1

REPORT INFORMATION
  Report Type: Spontaneous
  Country: FR (occurrence: FR)
  Receive Date: 20140108
  Receipt Date: 20140108
  Transmission Date: 20141002
  Serious: Yes (Hospitalization)
  Sender: FDA-Public Use
  Company Number: FR-NOVOPROD-397052

PATIENT
  Age: 64 Year
  Sex: Female
  Weight: 67 kg

DRUGS (3)
  1. VICTOZA [Suspect]
     Indication: TYPE 2 DIABETES MELLITUS
     Dosage: 1.8 MG, QD
     Route: 058
     Dates: start: 2010, end: 201302
  2. LEVEMIR [Concomitant]
     Indication: TYPE 2 DIABETES MELLITUS
  3. METFORMINE [Concomitant]
     Indication: TYPE 2 DIABETES MELLITUS
     Dosage: 1 G, BID

REACTIONS (2)
  - Pancreatic neoplasm [Recovered/Resolved with Sequelae]
  - Vomiting [Unknown]
